FAERS Safety Report 8806764 (Version 1)
Quarter: 2012Q4

REPORT INFORMATION
  Report Type: 
  Country: US (occurrence: US)
  Receive Date: 20120925
  Receipt Date: 20120925
  Transmission Date: 20130627
  Serious: Yes (Death)
  Sender: FDA-Public Use
  Company Number: US-ROCHE-1129488

PATIENT
  Sex: Female

DRUGS (2)
  1. HERCEPTIN [Suspect]
     Indication: BREAST CANCER FEMALE
     Dosage: loading dose
     Route: 065
     Dates: start: 19991001
  2. HERCEPTIN [Suspect]
     Dosage: maintenance dose
     Route: 065

REACTIONS (1)
  - Death [Fatal]
